FAERS Safety Report 6996875-2 (Version None)
Quarter: 2010Q3

REPORT INFORMATION
  Report Type: 
  Country: None (occurrence: None)
  Receive Date: 20100918
  Receipt Date: 20090727
  Transmission Date: 20110219
  Serious: No
  Sender: FDA-Public Use
  Company Number: US-WYE-H10344509

PATIENT
  Sex: Female
  Weight: 77.18 kg

DRUGS (4)
  1. PREMPRO [Suspect]
     Indication: HORMONE REPLACEMENT THERAPY
     Dosage: 0.45MG/1.5MG DAILY
     Route: 048
     Dates: start: 20081101, end: 20090101
  2. PREMPRO [Suspect]
     Dosage: 0.625MG/2.5MG DAILY
     Route: 048
     Dates: start: 20090201, end: 20090726
  3. DETROL [Concomitant]
  4. AMBIEN [Concomitant]

REACTIONS (4)
  - ALOPECIA [None]
  - HAIR GROWTH ABNORMAL [None]
  - HAIR TEXTURE ABNORMAL [None]
  - HEADACHE [None]
